FAERS Safety Report 8340695-3 (Version None)
Quarter: 2012Q2

REPORT INFORMATION
  Report Type: 
  Country: None (occurrence: None)
  Receive Date: 20120507
  Receipt Date: 20120426
  Transmission Date: 20120825
  Serious: Yes (Hospitalization)
  Sender: FDA-Public Use
  Company Number: US-BIOGENIDEC-2011BI039929

PATIENT
  Age: 40 Year
  Sex: Female

DRUGS (5)
  1. MIRAPEX [Concomitant]
  2. VALIUM [Concomitant]
     Indication: SLEEP DISORDER
  3. TYSABRI [Suspect]
     Indication: MULTIPLE SCLEROSIS
     Route: 042
     Dates: start: 20091221
  4. NUEDEXTA [Concomitant]
     Indication: DEPRESSION
  5. ELAVIL [Concomitant]
     Indication: SLEEP DISORDER

REACTIONS (7)
  - OESOPHAGEAL ULCER [None]
  - COLON OPERATION [None]
  - HIATUS HERNIA [None]
  - OESOPHAGEAL DISORDER [None]
  - POST PROCEDURAL COMPLICATION [None]
  - MEMORY IMPAIRMENT [None]
  - PNEUMONIA [None]
